FAERS Safety Report 8007628-0 (Version None)
Quarter: 2011Q4

REPORT INFORMATION
  Report Type: 
  Country: None (occurrence: None)
  Receive Date: 20111227
  Receipt Date: 20111219
  Transmission Date: 20120403
  Serious: Yes (Other)
  Sender: FDA-Public Use
  Company Number: US-BAYER-200938655NA

PATIENT
  Age: 61 Year
  Sex: Male
  Weight: 83 kg

DRUGS (19)
  1. TARKA [Concomitant]
     Dosage: 1 MG, BID
     Route: 048
  2. PLATELETS [Concomitant]
     Dosage: UNK
     Route: 042
     Dates: start: 20070102
  3. AMIODARONE HCL [Concomitant]
     Dosage: UNK
     Dates: start: 20070102
  4. LIPITOR [Concomitant]
     Dosage: 20 MG, QD
     Route: 048
  5. PEPCID [Concomitant]
     Dosage: 20MG
  6. AMICAR [Concomitant]
     Dosage: UNK
     Dates: start: 20070102
  7. TRASYLOL [Suspect]
     Indication: AORTIC VALVE REPLACEMENT
     Dosage: LOADING DOSE: 200ML FOLLOWED BY 50/HR
     Route: 042
     Dates: start: 20070102, end: 20070102
  8. TRASYLOL [Suspect]
     Indication: CORONARY ARTERY BYPASS
  9. ZOCOR [Concomitant]
     Dosage: 40 MG, QD
  10. ZETIA [Concomitant]
     Dosage: 10 MG, QD
  11. PLASMA [Concomitant]
     Dosage: UNK
     Dates: start: 20070102
  12. ADENOSINE [Concomitant]
  13. PROTAMINE SULFATE [Concomitant]
     Dosage: UNK
     Dates: start: 20070102
  14. HEPARIN [Concomitant]
     Dosage: UNK
     Dates: start: 20070102
  15. PREDNISONE TAB [Concomitant]
     Dosage: 4 MG, QD
     Route: 048
  16. LORTAB [Concomitant]
  17. VYTORIN [Concomitant]
  18. MAVIK [Concomitant]
     Dosage: 2 MG, BID
  19. REGLAN [Concomitant]
     Dosage: 10MG

REACTIONS (13)
  - DEPRESSION [None]
  - ERECTILE DYSFUNCTION [None]
  - DYSPNOEA [None]
  - FEAR [None]
  - PAIN [None]
  - ANHEDONIA [None]
  - CEREBROVASCULAR ACCIDENT [None]
  - ANXIETY [None]
  - RENAL FAILURE [None]
  - UNEVALUABLE EVENT [None]
  - INJURY [None]
  - AMNESIA [None]
  - DYSURIA [None]
